FAERS Safety Report 14531391 (Version 1)
Quarter: 2018Q1

REPORT INFORMATION
  Report Type: Spontaneous
  Country: CN (occurrence: CN)
  Receive Date: 20180214
  Receipt Date: 20180214
  Transmission Date: 20180509
  Serious: Yes (Hospitalization, Other)
  Sender: FDA-Public Use
  Company Number: CN-BAUSCH-BL-2018-003571

PATIENT
  Age: 60 Year
  Sex: Male

DRUGS (2)
  1. DEXAMETHASONE. [Suspect]
     Active Substance: DEXAMETHASONE
     Indication: PNEUMONIA ASPIRATION
     Route: 065
  2. CEFOPERAZONE, SULBACTAM [Concomitant]
     Indication: PNEUMONIA ASPIRATION

REACTIONS (1)
  - Scedosporium infection [Recovered/Resolved]
